FAERS Safety Report 18134271 (Version 3)
Quarter: 2021Q2

REPORT INFORMATION
  Report Type: Other
  Country: JP (occurrence: JP)
  Receive Date: 20200811
  Receipt Date: 20210623
  Transmission Date: 20210717
  Serious: Yes (Hospitalization, Other)
  Sender: FDA-Public Use
  Company Number: JP-ROCHE-2656827

PATIENT
  Age: 60 Year
  Sex: Female

DRUGS (1)
  1. TECENTRIQ [Suspect]
     Active Substance: ATEZOLIZUMAB
     Indication: LUNG ADENOCARCINOMA
     Route: 041

REACTIONS (5)
  - Urine output increased [Unknown]
  - Interstitial lung disease [Unknown]
  - Metastases to central nervous system [Unknown]
  - Adrenal insufficiency [Unknown]
  - Metastases to pituitary gland [Unknown]
